FAERS Safety Report 8692340 (Version 2)
Quarter: 2012Q4

REPORT INFORMATION
  Report Type: Report from Study
  Country: BF (occurrence: BF)
  Receive Date: 20120730
  Receipt Date: 20121206
  Transmission Date: 20130627
  Serious: Yes (Other)
  Sender: FDA-Public Use
  Company Number: PHHO2011BF17444

PATIENT
  Age: 25 Year
  Sex: Female

DRUGS (4)
  1. CGP 56697 [Suspect]
     Indication: MALARIA
     Dosage: 1 DF, BID (800/480  mg, BID)
     Route: 048
     Dates: start: 20110602
  2. QUININE [Concomitant]
     Indication: MALARIA
     Dosage: 900 mg, UNK
     Route: 048
     Dates: start: 20111011, end: 20111017
  3. PARACETAMOL [Concomitant]
     Indication: MALARIA
     Dosage: 2 g, UNK
     Route: 048
     Dates: start: 20111011, end: 20111015
  4. ETHINYL ESTRADIOL\LEVONORGESTREL [Concomitant]
     Indication: CONTRACEPTION

REACTIONS (2)
  - Abortion spontaneous [Recovered/Resolved]
  - Exposure during pregnancy [Unknown]
